FAERS Safety Report 13961313 (Version 1)
Quarter: 2017Q3

REPORT INFORMATION
  Report Type: Spontaneous
  Country: US (occurrence: None)
  Receive Date: 20170912
  Receipt Date: 20170912
  Transmission Date: 20171128
  Serious: Yes (Other)
  Sender: FDA-Public Use
  Company Number: None

PATIENT
  Age: 71 Year
  Sex: Female
  Weight: 56.7 kg

DRUGS (15)
  1. TYLENOL (8 HR) [Concomitant]
  2. VITAMINS [Concomitant]
     Active Substance: VITAMINS
  3. MINERAL SUPPLEMENTS [Concomitant]
     Active Substance: MINERALS
  4. VANCOCIN [Suspect]
     Active Substance: VANCOMYCIN HYDROCHLORIDE
     Indication: CLOSTRIDIUM DIFFICILE INFECTION
     Dosage: 2 CAPS EVERY 6 HRS FOR 10 DA EVERY 6 HRS BY MOUTH
     Route: 048
     Dates: start: 20170505, end: 20170519
  5. PROBIOTICS [Concomitant]
     Active Substance: PROBIOTICS NOS
  6. MINERALS [Concomitant]
     Active Substance: MINERALS
  7. VIVISCAL [Concomitant]
  8. GREEN TEA CAPS [Concomitant]
  9. LUTEIN [Concomitant]
     Active Substance: LUTEIN
  10. PEPTO-BISMOL [Concomitant]
     Active Substance: BISMUTH SUBSALICYLATE
  11. KERATIN [Concomitant]
     Active Substance: KERATIN
  12. EXCEDRIN [Concomitant]
     Active Substance: ACETAMINOPHEN\ASPIRIN\CAFFEINE
  13. CITRACAL [Concomitant]
     Active Substance: CALCIUM CITRATE
  14. N-ACETYL-L-CYSTEINE [Concomitant]
     Active Substance: ACETYLCYSTEINE
  15. WAL-PHED DE FOR SINUS + ALLERGY (ANTIHISTAMINE) [Concomitant]

REACTIONS (5)
  - Asthenia [None]
  - Hypoaesthesia [None]
  - Alopecia [None]
  - Diarrhoea [None]
  - Dehydration [None]
